FAERS Safety Report 7224501-6 (Version None)
Quarter: 2011Q1

REPORT INFORMATION
  Report Type: 
  Country: None (occurrence: None)
  Receive Date: 20110113
  Receipt Date: 20110107
  Transmission Date: 20110831
  Serious: Yes (Other)
  Sender: FDA-Public Use
  Company Number: US-PFIZER INC-2011004735

PATIENT
  Sex: Female

DRUGS (2)
  1. NEURONTIN [Concomitant]
     Dosage: UNK
     Route: 048
  2. LYRICA [Suspect]
     Indication: DIABETIC NEUROPATHY
     Dosage: 150 MG, UNK
     Route: 048

REACTIONS (1)
  - ATAXIA [None]
